FAERS Safety Report 9914237 (Version 5)
Quarter: 2014Q4

REPORT INFORMATION
  Report Type: Spontaneous
  Country: US (occurrence: None)
  Receive Date: 20140218
  Receipt Date: 20141024
  Transmission Date: 20150529
  Serious: Yes (Hospitalization, Other)
  Sender: FDA-Public Use
  Company Number: 2014-US-000335

PATIENT
  Age: 50 Year
  Sex: Male
  Weight: 71.7 kg

DRUGS (2)
  1. XYREM [Suspect]
     Active Substance: SODIUM OXYBATE
     Indication: SLEEP DISORDER
     Dosage: 1 G, TID, ORAL
     Route: 048
     Dates: start: 201312, end: 201312
  2. XYREM [Suspect]
     Active Substance: SODIUM OXYBATE
     Indication: MYOCLONUS
     Dosage: 1 G, TID, ORAL
     Route: 048
     Dates: start: 201312, end: 201312

REACTIONS (14)
  - Nerve injury [None]
  - Spinal operation [None]
  - Off label use [None]
  - Thrombosis [None]
  - Fall [None]
  - Cervical myelopathy [None]
  - Inappropriate schedule of drug administration [None]
  - Muscle spasms [None]
  - Muscle twitching [None]
  - Condition aggravated [None]
  - Spinal cord injury [None]
  - Exostosis [None]
  - Post procedural complication [None]
  - Epistaxis [None]

NARRATIVE: CASE EVENT DATE: 201402
